FAERS Safety Report 11847945 (Version 5)
Quarter: 2016Q2

REPORT INFORMATION
  Report Type: Report from Study
  Country: FR (occurrence: FR)
  Receive Date: 20151217
  Receipt Date: 20160523
  Transmission Date: 20160815
  Serious: Yes (Hospitalization, Other)
  Sender: FDA-Public Use
  Company Number: FR-ROCHE-1677723

PATIENT
  Age: 77 Year
  Sex: Male

DRUGS (8)
  1. TRIATEC (FRANCE) [Concomitant]
     Active Substance: RAMIPRIL
  2. PLAVIX [Concomitant]
     Active Substance: CLOPIDOGREL BISULFATE
  3. ACEBUTOLOL [Concomitant]
     Active Substance: ACEBUTOLOL
  4. PRAVASTATIN [Concomitant]
     Active Substance: PRAVASTATIN\PRAVASTATIN SODIUM
  5. COBIMETINIB [Suspect]
     Active Substance: COBIMETINIB
     Indication: MALIGNANT MELANOMA
     Dosage: (3 TABS AT NOON).
     Route: 048
     Dates: start: 20151030, end: 20151110
  6. VEMURAFENIB [Suspect]
     Active Substance: VEMURAFENIB
     Indication: MALIGNANT MELANOMA
     Dosage: (4 TABS AT THE MORNING AND AT NIGHT)?ON 10/NOV/2015, DOSE REDUCED TO 3 TABS AT THE MORNING AND AT NI
     Route: 048
     Dates: start: 20151015
  7. KARDEGIC [Concomitant]
     Active Substance: ASPIRIN LYSINE
  8. PARIET [Concomitant]
     Active Substance: RABEPRAZOLE SODIUM

REACTIONS (3)
  - Conduction disorder [Recovered/Resolved]
  - Renal failure [Recovering/Resolving]
  - Malaise [Recovered/Resolved]

NARRATIVE: CASE EVENT DATE: 20151104
